FAERS Safety Report 16943626 (Version 3)
Quarter: 2021Q1

REPORT INFORMATION
  Report Type: Other
  Country: GB (occurrence: GB)
  Receive Date: 20191022
  Receipt Date: 20210222
  Transmission Date: 20210419
  Serious: Yes (Death)
  Sender: FDA-Public Use
  Company Number: GB-CELLTRION INC.-2019GB022481

PATIENT

DRUGS (11)
  1. CAPECITABINE. [Suspect]
     Active Substance: CAPECITABINE
     Indication: BREAST CANCER METASTATIC
     Dosage: 2300 MG WITH INTERVAL OF 0.5 DAY
     Route: 048
     Dates: start: 20181115, end: 20190108
  2. ACICLOVIR [Concomitant]
     Active Substance: ACYCLOVIR
     Dosage: 200 MG (INTERVAL: 0.5 DAY)
     Route: 048
  3. TRASTUZUMAB (UNKNOWN) [Suspect]
     Active Substance: TRASTUZUMAB
     Dosage: 441 MG, EVERY 3 WEEKS
     Route: 041
     Dates: start: 20181227, end: 20190606
  4. CAPECITABINE. [Suspect]
     Active Substance: CAPECITABINE
     Dosage: 1800 MG WITH INTERVAL OF 0.5 DAY
     Route: 048
     Dates: start: 20190117, end: 20190301
  5. TRASTUZUMAB (UNKNOWN) [Suspect]
     Active Substance: TRASTUZUMAB
     Indication: BREAST CANCER METASTATIC
     Dosage: 588 MG, EVERY 3 WEEKS
     Route: 042
     Dates: start: 20181115, end: 20181227
  6. LETROZOLE. [Suspect]
     Active Substance: LETROZOLE
     Indication: BREAST CANCER METASTATIC
     Dosage: 2.5 MG, 1/DAY
     Route: 048
     Dates: start: 20190320
  7. DENOSUMAB [Concomitant]
     Active Substance: DENOSUMAB
     Dosage: 120 MG, EVERY 6 WEEKS (BONE STRENGTHENING FOR METASTATIC DISEASE)
     Route: 058
     Dates: start: 20130831, end: 20190606
  8. PYRIDOXINE [Concomitant]
     Active Substance: PYRIDOXINE
     Indication: ERYTHEMA
     Dosage: 40 MG, DAILY
     Route: 048
     Dates: start: 201901
  9. TRASTUZUMAB EMTANSINE [Suspect]
     Active Substance: ADO-TRASTUZUMAB EMTANSINE
     Indication: BREAST CANCER METASTATIC
     Dosage: 250 MG, EVERY 3 WEEKS
     Route: 058
     Dates: start: 20170831, end: 20181025
  10. LEVOTHYROXINE. [Concomitant]
     Active Substance: LEVOTHYROXINE
     Dosage: 75 UG, DAILY
     Route: 048
     Dates: start: 2003
  11. DEXAMETHASONE. [Concomitant]
     Active Substance: DEXAMETHASONE
     Dosage: 2 MG, 1/DAY
     Route: 048
     Dates: start: 20190320

REACTIONS (6)
  - Purpura [Fatal]
  - Erythema [Unknown]
  - Herpes zoster [Recovered/Resolved]
  - Disease progression [Fatal]
  - Varicella zoster virus infection [Fatal]
  - Death [Fatal]

NARRATIVE: CASE EVENT DATE: 20190108
